FAERS Safety Report 25414121 (Version 2)
Quarter: 2025Q3

REPORT INFORMATION
  Report Type: Spontaneous
  Country: EU (occurrence: EU)
  Receive Date: 20250609
  Receipt Date: 20250820
  Transmission Date: 20251020
  Serious: Yes (Other)
  Sender: MYLAN
  Company Number: EU-MYLANLABS-2025M1048118

PATIENT
  Age: 16 Year
  Sex: Male
  Weight: 60 kg

DRUGS (10)
  1. ISOTRETINOIN [Suspect]
     Active Substance: ISOTRETINOIN
     Indication: Acne cystic
     Dosage: 0.2 MILLIGRAM/KILOGRAM, QD
  2. ISOTRETINOIN [Suspect]
     Active Substance: ISOTRETINOIN
     Dosage: 10 MILLIGRAM, QD
     Dates: start: 20130201, end: 20130215
  3. PREDNISONE [Suspect]
     Active Substance: PREDNISONE
     Indication: Acne fulminans
     Dosage: 25 MILLIGRAM, QD
     Dates: start: 20130215, end: 20130228
  4. PREDNISONE [Suspect]
     Active Substance: PREDNISONE
     Dosage: 12.5 MILLIGRAM, QD
     Dates: start: 20190301, end: 20190315
  5. CLINDAMYCIN [Suspect]
     Active Substance: CLINDAMYCIN
     Indication: Acne cystic
  6. CLINDAMYCIN [Suspect]
     Active Substance: CLINDAMYCIN
     Indication: Antibiotic therapy
     Dosage: 150 MILLIGRAM, QID
     Dates: start: 20130223, end: 20130309
  7. CLINDAMYCIN [Suspect]
     Active Substance: CLINDAMYCIN
     Indication: Acne fulminans
  8. CEFTRIAXONE [Concomitant]
     Active Substance: CEFTRIAXONE
     Indication: Antibiotic therapy
     Dosage: 1 GRAM, QD
     Dates: start: 20190215, end: 20190222
  9. CEFTRIAXONE [Concomitant]
     Active Substance: CEFTRIAXONE
     Indication: Acne fulminans
  10. AMOXICILLIN\CLAVULANIC ACID [Concomitant]
     Active Substance: AMOXICILLIN\CLAVULANIC ACID
     Indication: Antibiotic therapy
     Dosage: UNK, QD
     Dates: start: 20190223, end: 20190302

REACTIONS (2)
  - Acne fulminans [Recovering/Resolving]
  - Drug ineffective [Unknown]

NARRATIVE: CASE EVENT DATE: 20130215
